FAERS Safety Report 25552338 (Version 1)
Quarter: 2025Q3

REPORT INFORMATION
  Report Type: Spontaneous
  Country: GB (occurrence: GB)
  Receive Date: 20250715
  Receipt Date: 20250715
  Transmission Date: 20251021
  Serious: Yes (Other)
  Sender: ACCORD
  Company Number: None

PATIENT
  Age: 64 Year
  Sex: Female

DRUGS (4)
  1. ATORVASTATIN [Suspect]
     Active Substance: ATORVASTATIN
     Indication: Blood cholesterol increased
     Dates: start: 20250530
  2. LEVOTHYROXINE [Suspect]
     Active Substance: LEVOTHYROXINE
     Indication: Hyperthyroidism
     Dates: start: 20250312
  3. TOLTERODINE [Concomitant]
     Active Substance: TOLTERODINE
  4. BECLOMETHASONE\FORMOTEROL [Concomitant]
     Active Substance: BECLOMETHASONE\FORMOTEROL

REACTIONS (3)
  - Chest pain [Not Recovered/Not Resolved]
  - Gastrooesophageal reflux disease [Unknown]
  - Hypertension [Unknown]

NARRATIVE: CASE EVENT DATE: 20250520
